FAERS Safety Report 10099892 (Version 4)
Quarter: 2014Q2

REPORT INFORMATION
  Report Type: Spontaneous
  Country: US (occurrence: US)
  Receive Date: 20140423
  Receipt Date: 20140527
  Transmission Date: 20141212
  Serious: Yes (Hospitalization)
  Sender: FDA-Public Use
  Company Number: US-PFIZER INC-2014111174

PATIENT
  Sex: Male

DRUGS (2)
  1. LYRICA [Suspect]
     Dosage: UNK
  2. LYRICA [Suspect]
     Dosage: UNK

REACTIONS (7)
  - Back pain [Unknown]
  - Musculoskeletal pain [Unknown]
  - Chest pain [Unknown]
  - Swelling [Unknown]
  - Pain [Recovering/Resolving]
  - Pain in extremity [Unknown]
  - Pyrexia [Unknown]
